FAERS Safety Report 7980108-4 (Version None)
Quarter: 2011Q4

REPORT INFORMATION
  Report Type: 
  Country: None (occurrence: None)
  Receive Date: 20111214
  Receipt Date: 20111208
  Transmission Date: 20120403
  Serious: Yes (Other)
  Sender: FDA-Public Use
  Company Number: GB-MERCK-1112GBR00018

PATIENT
  Sex: Male

DRUGS (1)
  1. SINGULAIR [Suspect]
     Indication: ASTHMA
     Route: 048
     Dates: start: 20111109, end: 20111112

REACTIONS (5)
  - CRYING [None]
  - MOOD SWINGS [None]
  - ANGER [None]
  - DEPRESSION [None]
  - ANXIETY [None]
